FAERS Safety Report 4789260-5 (Version None)
Quarter: 2005Q3

REPORT INFORMATION
  Report Type: 
  Country: None (occurrence: None)
  Receive Date: 20050929
  Receipt Date: 20050803
  Transmission Date: 20060218
  Serious: No
  Sender: FDA-Public Use
  Company Number: 05P-163-0307457-00

PATIENT
  Age: 53 Year
  Sex: Female
  Weight: 100 kg

DRUGS (7)
  1. HUMIRA [Suspect]
     Indication: RHEUMATOID ARTHRITIS
     Dosage: 40 MG, 1 IN 2 WK, SUBCUTANEOUS
     Route: 058
     Dates: start: 20050802
  2. CELECOXIB [Concomitant]
  3. TRAMADOL HYDROCHLORIDE [Concomitant]
  4. ESTRADIOL [Concomitant]
  5. PREDNISONE [Concomitant]
  6. METHOTREXATE [Concomitant]
  7. RESTASIS [Concomitant]

REACTIONS (1)
  - INJECTION SITE IRRITATION [None]
